FAERS Safety Report 5278378-9 (Version None)
Quarter: 2007Q1

REPORT INFORMATION
  Report Type: 
  Country: None (occurrence: None)
  Receive Date: 20070328
  Receipt Date: 20070316
  Transmission Date: 20070707
  Serious: Yes (Hospitalization)
  Sender: FDA-Public Use
  Company Number: JP-ROCHE-486788

PATIENT
  Age: 16 Year
  Sex: Male
  Weight: 47 kg

DRUGS (3)
  1. TAMIFLU [Suspect]
     Route: 048
     Dates: start: 20070226, end: 20070226
  2. TAMIFLU [Suspect]
     Route: 048
     Dates: start: 20070227, end: 20070227
  3. CALONAL [Concomitant]
     Route: 048
     Dates: start: 20070226, end: 20070226

REACTIONS (1)
  - HEPATIC FUNCTION ABNORMAL [None]
